FAERS Safety Report 10563976 (Version 1)
Quarter: 2014Q4

REPORT INFORMATION
  Report Type: Spontaneous
  Country: US (occurrence: US)
  Receive Date: 20141104
  Receipt Date: 20141104
  Transmission Date: 20150529
  Serious: No
  Sender: FDA-Public Use
  Company Number: US-TEVA-520391USA

PATIENT
  Sex: Female

DRUGS (1)
  1. PLAN B ONE-STEP [Suspect]
     Active Substance: LEVONORGESTREL
     Indication: POST COITAL CONTRACEPTION
     Dosage: 1.5 MILLIGRAM DAILY;
     Route: 048

REACTIONS (6)
  - Muscle spasms [Unknown]
  - Nausea [Unknown]
  - Headache [Unknown]
  - Metrorrhagia [Unknown]
  - Back pain [Unknown]
  - Menstruation irregular [Unknown]
